FAERS Safety Report 5570906-9 (Version None)
Quarter: 2007Q4

REPORT INFORMATION
  Report Type: 
  Country: None (occurrence: None)
  Receive Date: 20071221
  Receipt Date: 20071211
  Transmission Date: 20080405
  Serious: Yes (Hospitalization)
  Sender: FDA-Public Use
  Company Number: FR-AVENTIS-200713982FR

PATIENT
  Age: 44 Year
  Sex: Male

DRUGS (12)
  1. TRIATEC                            /00885601/ [Suspect]
     Route: 048
     Dates: start: 20030101, end: 20070926
  2. LASIX [Suspect]
     Route: 048
     Dates: start: 20030101, end: 20070926
  3. ATACAND [Suspect]
     Route: 048
     Dates: start: 20030101, end: 20070926
  4. CARDENSIEL [Concomitant]
     Route: 048
  5. AMLOR [Concomitant]
     Route: 048
  6. TAHOR [Concomitant]
     Route: 048
  7. KARDEGIC                           /00002703/ [Concomitant]
  8. KAYEXALATE [Concomitant]
     Route: 048
  9. ZYLORIC [Concomitant]
     Route: 048
  10. RENAGEL                            /01459902/ [Concomitant]
     Route: 048
  11. MIXTARD HUMAN 70/30 [Concomitant]
     Route: 058
  12. LANTUS [Concomitant]
     Route: 058

REACTIONS (3)
  - DRUG INTERACTION [None]
  - HYPERKALAEMIA [None]
  - RENAL FAILURE ACUTE [None]
